FAERS Safety Report 17674108 (Version 2)
Quarter: 2020Q2

REPORT INFORMATION
  Report Type: Report from Study
  Country: None (occurrence: US)
  Receive Date: 20200415
  Receipt Date: 20200622
  Transmission Date: 20200714
  Serious: Yes (Other)
  Sender: FDA-Public Use
  Company Number: US-ABBVIE-20K-163-3365090-00

PATIENT
  Sex: Male

DRUGS (2)
  1. HUMIRA [Suspect]
     Active Substance: ADALIMUMAB
     Indication: CROHN^S DISEASE
  2. HUMIRA [Suspect]
     Active Substance: ADALIMUMAB
     Indication: HIDRADENITIS
     Dosage: CITRATE FREE
     Route: 058

REACTIONS (6)
  - Tooth abscess [Not Recovered/Not Resolved]
  - Diabetes mellitus [Recovering/Resolving]
  - Abdominal adhesions [Recovering/Resolving]
  - Impaired healing [Recovering/Resolving]
  - Nodule [Not Recovered/Not Resolved]
  - Postoperative wound infection [Not Recovered/Not Resolved]
